FAERS Safety Report 4947822-6 (Version None)
Quarter: 2006Q1

REPORT INFORMATION
  Report Type: 
  Country: None (occurrence: None)
  Receive Date: 20060317
  Receipt Date: 20060317
  Transmission Date: 20060701
  Serious: Yes (Hospitalization)
  Sender: FDA-Public Use
  Company Number: None

PATIENT
  Sex: Male
  Weight: 112.0385 kg

DRUGS (2)
  1. MORPHINE SULFATE [Suspect]
     Indication: BACK PAIN
     Dosage: 15 MG 1 TABLET BID
     Dates: start: 20050607, end: 20051106
  2. HYDROCODONE/ACETAMINOPHAM 10/500 MG [Suspect]
     Indication: BACK PAIN
     Dosage: 10/500 MG 1 TABLET QID PRN PO
     Route: 048
     Dates: start: 20050624, end: 20051106

REACTIONS (4)
  - ABDOMINAL DISTENSION [None]
  - ABDOMINAL PAIN [None]
  - FAECAL VOLUME INCREASED [None]
  - INTESTINAL DILATATION [None]
